FAERS Safety Report 6502748-1 (Version None)
Quarter: 2009Q4

REPORT INFORMATION
  Report Type: 
  Country: None (occurrence: None)
  Receive Date: 20091217
  Receipt Date: 20091207
  Transmission Date: 20100525
  Serious: Yes (Death, Hospitalization, Other)
  Sender: FDA-Public Use
  Company Number: JP-SOLVAY-00309004431

PATIENT
  Age: 26352 Day
  Sex: Male
  Weight: 48 kg

DRUGS (21)
  1. GASPORT-D [Concomitant]
     Indication: BLOOD PH INCREASED
     Dosage: DAILY DOSE: 40 MILLIGRAM(S)
     Route: 048
     Dates: start: 20090623, end: 20091119
  2. CREON [Suspect]
     Indication: PANCREATIC ENZYME ABNORMALITY
     Dosage: DAILY DOSE: 12 DOSAGE FORM
     Route: 048
     Dates: start: 20090724, end: 20091119
  3. CREON [Suspect]
     Dosage: DAILY DOSE: 2 CAPSULE, FREQUENCY: AS NEEDED.
     Route: 048
     Dates: start: 20090724, end: 20091119
  4. LASIX [Concomitant]
     Indication: ASCITES
     Dosage: DAILY DOSE: 20 MILLIGRAM(S)
     Route: 048
     Dates: start: 20090623, end: 20091119
  5. KYTRIL [Concomitant]
     Indication: VOMITING
     Dosage: DAILY DOSE: 3 MILLIGRAM(S)
     Route: 042
     Dates: start: 20090716, end: 20090716
  6. KYTRIL [Concomitant]
     Dosage: DAILY DOSE: 3 MILLIGRAM(S)
     Route: 042
     Dates: start: 20090806, end: 20090806
  7. KYTRIL [Concomitant]
     Dosage: DAILY DOSE: 3 MILLIGRAM(S)
     Route: 042
     Dates: start: 20090826, end: 20090826
  8. KYTRIL [Concomitant]
     Dosage: DAILY DOSE: 3 MILLIGRAM(S)
     Route: 042
     Dates: start: 20090910, end: 20090910
  9. ISOTONIC SODIUM CHLORIDE SOLUTION [Concomitant]
     Indication: PROPHYLAXIS
     Dosage: DAILY DOSE: 50 MILLILITRE(S)
     Route: 042
     Dates: start: 20090716, end: 20090716
  10. ISOTONIC SODIUM CHLORIDE SOLUTION [Concomitant]
     Dosage: DAILY DOSE: 50 MILLILITRE(S)
     Route: 042
     Dates: start: 20090806, end: 20090806
  11. ISOTONIC SODIUM CHLORIDE SOLUTION [Concomitant]
     Dosage: DAILY DOSE: 50 MILLILITRE(S)
     Route: 042
     Dates: start: 20090826, end: 20090826
  12. ISOTONIC SODIUM CHLORIDE SOLUTION [Concomitant]
     Dosage: DAILY DOSE: 50 MILLILITRE(S)
     Route: 042
     Dates: start: 20090910, end: 20090910
  13. GEMZAR [Concomitant]
     Indication: PROPHYLAXIS
     Dosage: DAILY DOSE: 1000 MILLIGRAM(S)
     Route: 042
     Dates: start: 20090716, end: 20090716
  14. GEMZAR [Concomitant]
     Dosage: DAILY DOSE: 1000 MILLIGRAM(S)
     Route: 042
     Dates: start: 20090806, end: 20090806
  15. GEMZAR [Concomitant]
     Dosage: DAILY DOSE: 1000 MILLIGRAM(S)
     Route: 042
     Dates: start: 20090826, end: 20090826
  16. GEMZAR [Concomitant]
     Dosage: DAILY DOSE: 1000 MILLIGRAM(S)
     Route: 042
     Dates: start: 20090910, end: 20090910
  17. TS-1 [Concomitant]
     Indication: PROPHYLAXIS
     Dosage: DAILY DOSE: 80 MILLIGRAM(S)
     Route: 048
     Dates: start: 20090716, end: 20090805
  18. MUCOSTA [Concomitant]
     Indication: GASTRITIS PROPHYLAXIS
     Dosage: DAILY DOSE: 300 MILLIGRAM(S)
     Route: 048
     Dates: start: 20091015, end: 20091024
  19. MUCOSTA [Concomitant]
     Dosage: DAILY DOSE: 300 MILLIGRAM(S)
     Route: 048
     Dates: start: 20091112, end: 20091118
  20. ENTERONON-R [Concomitant]
     Indication: ANTIBIOTIC PROPHYLAXIS
     Dosage: DAILY DOSE: 3 GRAM(S)
     Route: 048
     Dates: start: 20091019, end: 20091024
  21. ENTERONON-R [Concomitant]
     Dosage: DAILY DOSE: 3 GRAM(S)
     Route: 048
     Dates: start: 20091112, end: 20091118

REACTIONS (3)
  - CHOLANGITIS [None]
  - JAUNDICE CHOLESTATIC [None]
  - METASTASES TO LIVER [None]
